FAERS Safety Report 26158001 (Version 2)
Quarter: 2025Q4

REPORT INFORMATION
  Report Type: Spontaneous
  Country: NZ (occurrence: NZ)
  Receive Date: 20251215
  Receipt Date: 20251229
  Transmission Date: 20260117
  Serious: Yes (Death)
  Sender: MYLAN
  Company Number: NZ-MYLANLABS-2025M1107094

PATIENT
  Age: 84 Year
  Sex: Male

DRUGS (8)
  1. CLOZARIL [Suspect]
     Active Substance: CLOZAPINE
     Indication: Schizophrenia
     Dosage: UNK
     Route: 061
     Dates: start: 20240103, end: 20251130
  2. SINEMET [Concomitant]
     Active Substance: CARBIDOPA\LEVODOPA
     Dosage: UNK
  3. OMEPRAZOLE [Concomitant]
     Active Substance: OMEPRAZOLE
     Dosage: UNK
  4. DONEPEZIL [Concomitant]
     Active Substance: DONEPEZIL
     Dosage: UNK
  5. DOCUSATE SODIUM\SENNOSIDES A AND B [Concomitant]
     Active Substance: DOCUSATE SODIUM\SENNOSIDES A AND B
     Dosage: UNK
  6. METOPROLOL [Concomitant]
     Active Substance: METOPROLOL
     Dosage: UNK
  7. DOXAZOSIN [Concomitant]
     Active Substance: DOXAZOSIN MESYLATE
     Dosage: UNK
  8. DABIGATRAN [Concomitant]
     Active Substance: DABIGATRAN
     Dosage: UNK

REACTIONS (2)
  - Illness [Fatal]
  - Asthenia [Fatal]

NARRATIVE: CASE EVENT DATE: 20251130
